FAERS Safety Report 9469751 (Version 3)
Quarter: 2013Q4

REPORT INFORMATION
  Report Type: Report from Study
  Country: NZ (occurrence: NZ)
  Receive Date: 20130822
  Receipt Date: 20131018
  Transmission Date: 20140711
  Serious: Yes (Death, Hospitalization, Other)
  Sender: FDA-Public Use
  Company Number: PHHY2013NZ090073

PATIENT
  Age: 48 Year
  Sex: Male

DRUGS (3)
  1. CLOZARIL [Suspect]
     Indication: SCHIZOPHRENIA
     Dosage: 375 MG, DAILY
     Route: 048
     Dates: start: 20030407
  2. CLOZARIL [Suspect]
     Dosage: UNK
     Dates: start: 20130407
  3. BENZOTROPINE [Concomitant]
     Indication: SALIVARY HYPERSECRETION
     Dosage: 2 MG, UNK
     Route: 048
     Dates: start: 20130311

REACTIONS (7)
  - Viral infection [Fatal]
  - Malaise [Fatal]
  - Pneumonia [Fatal]
  - Psychotic disorder [Unknown]
  - Chronic lymphocytic leukaemia [Unknown]
  - White blood cell count increased [Unknown]
  - Lymphocyte count increased [Unknown]
